FAERS Safety Report 8594741 (Version 2)
Quarter: 2014Q4

REPORT INFORMATION
  Report Type: Spontaneous
  Country: US (occurrence: US)
  Receive Date: 20120604
  Receipt Date: 20141215
  Transmission Date: 20150529
  Serious: Yes (Life-Threatening, Hospitalization, Congenital Anomaly, Other)
  Sender: FDA-Public Use
  Company Number: US-PFIZER INC-2012128841

PATIENT
  Sex: Male

DRUGS (3)
  1. ZOLOFT [Suspect]
     Active Substance: SERTRALINE HYDROCHLORIDE
     Indication: DEPRESSION
     Dosage: 50 MG, 1X/DAY IN THE MORNING
     Route: 064
     Dates: start: 20040217
  2. ZOLOFT [Suspect]
     Active Substance: SERTRALINE HYDROCHLORIDE
     Indication: ANXIETY
  3. TRAZODONE [Concomitant]
     Active Substance: TRAZODONE HYDROCHLORIDE
     Indication: SLEEP DISORDER
     Dosage: UNK
     Route: 064

REACTIONS (14)
  - Maternal exposure timing unspecified [Not Recovered/Not Resolved]
  - Atrial septal defect [Not Recovered/Not Resolved]
  - Mitral valve atresia [Not Recovered/Not Resolved]
  - Aorta hypoplasia [Not Recovered/Not Resolved]
  - Aortic valve atresia [Not Recovered/Not Resolved]
  - Congenital aortic valve stenosis [Not Recovered/Not Resolved]
  - Right ventricular hypertrophy [Not Recovered/Not Resolved]
  - Dilatation ventricular [Not Recovered/Not Resolved]
  - Hypoplastic left heart syndrome [Recovering/Resolving]
  - Right atrial dilatation [Not Recovered/Not Resolved]
  - Congenital aortic anomaly [Not Recovered/Not Resolved]
  - Patent ductus arteriosus [Not Recovered/Not Resolved]
  - Tricuspid valve incompetence [Recovered/Resolved]
  - Ventricular septal defect [Not Recovered/Not Resolved]

NARRATIVE: CASE EVENT DATE: 20041230
